FAERS Safety Report 8432870-4 (Version None)
Quarter: 2012Q2

REPORT INFORMATION
  Report Type: 
  Country: None (occurrence: None)
  Receive Date: 20120613
  Receipt Date: 20120607
  Transmission Date: 20120825
  Serious: Yes (Other)
  Sender: FDA-Public Use
  Company Number: TH-ROCHE-1066421

PATIENT
  Sex: Female
  Weight: 52.8 kg

DRUGS (4)
  1. ALISPORIVIR [Suspect]
     Indication: HEPATITIS C
     Dates: start: 20110309
  2. HYDROCHLOROTHIAZIDE [Concomitant]
     Dates: start: 20110430
  3. ENALAPRIL MALEATE [Concomitant]
     Dates: start: 20110121
  4. PEGASYS [Suspect]
     Indication: HEPATITIS C
     Route: 058
     Dates: start: 20110302, end: 20110518

REACTIONS (1)
  - RETINOPATHY [None]
